FAERS Safety Report 4677872-9 (Version None)
Quarter: 2005Q2

REPORT INFORMATION
  Report Type: 
  Country: None (occurrence: None)
  Receive Date: 20050527
  Receipt Date: 20050411
  Transmission Date: 20051028
  Serious: Yes (Hospitalization)
  Sender: FDA-Public Use
  Company Number: M-05-136

PATIENT
  Age: 75 Year
  Sex: Male

DRUGS (9)
  1. AMIODARONE HCL [Suspect]
     Indication: ARRHYTHMIA
     Dosage: 200 MG QD PO
     Route: 048
     Dates: start: 19990101, end: 20050401
  2. PREDNISONE TAB [Concomitant]
  3. LISINOPRIL [Concomitant]
  4. GLIPIZIDE [Concomitant]
  5. HYDROCHLOROTHIAZIDE [Concomitant]
  6. VERAPAMIL HCL [Concomitant]
  7. OXYGEN [Concomitant]
  8. ALUPENT [Concomitant]
  9. MESALAMINE [Concomitant]

REACTIONS (9)
  - ANOREXIA [None]
  - DEHYDRATION [None]
  - IMPAIRED DRIVING ABILITY [None]
  - INSOMNIA [None]
  - PANIC ATTACK [None]
  - ULCER [None]
  - VISUAL DISTURBANCE [None]
  - VOMITING [None]
  - WEIGHT DECREASED [None]
